FAERS Safety Report 6429912-4 (Version None)
Quarter: 2009Q4

REPORT INFORMATION
  Report Type: 
  Country: None (occurrence: None)
  Receive Date: 20091106
  Receipt Date: 20091030
  Transmission Date: 20100525
  Serious: Yes (Other)
  Sender: FDA-Public Use
  Company Number: BR-JNJFOC-20090702236

PATIENT
  Sex: Female
  Weight: 9.85 kg

DRUGS (1)
  1. PANTELMIN [Suspect]
     Indication: HELMINTHIC INFECTION
     Dosage: 100 MG
     Route: 065
     Dates: start: 20090626, end: 20090627

REACTIONS (2)
  - RESPIRATORY DISORDER [None]
  - URTICARIA [None]
